FAERS Safety Report 5705449-2 (Version None)
Quarter: 2008Q2

REPORT INFORMATION
  Report Type: 
  Country: None (occurrence: None)
  Receive Date: 20080410
  Receipt Date: 20080402
  Transmission Date: 20081010
  Serious: Yes (Hospitalization)
  Sender: FDA-Public Use
  Company Number: 100#08#2008-01821

PATIENT
  Age: 68 Year
  Sex: Female

DRUGS (3)
  1. CARBAMAZEPINE (CARBAMAZEPINE) [Suspect]
     Indication: TRIGEMINAL NEURALGIA
  2. AMOXICILLIN TRIHYDRATE [Suspect]
     Indication: LYMPHADENOPATHY
  3. AMOXICILLIN TRIHYDRATE [Suspect]
     Indication: PRURITUS

REACTIONS (2)
  - DRUG RASH WITH EOSINOPHILIA AND SYSTEMIC SYMPTOMS [None]
  - SKIN TEST POSITIVE [None]
